FAERS Safety Report 13403321 (Version 2)
Quarter: 2017Q2

REPORT INFORMATION
  Report Type: Spontaneous
  Country: US (occurrence: US)
  Receive Date: 20170404
  Receipt Date: 20170512
  Transmission Date: 20170830
  Serious: No
  Sender: FDA-Public Use
  Company Number: US-TEVA-748471ACC

PATIENT
  Sex: Female
  Weight: 56.3 kg

DRUGS (1)
  1. PARAGARD T 380A [Suspect]
     Active Substance: COPPER
     Indication: CONTRACEPTION
     Dates: start: 20170223, end: 20170307

REACTIONS (4)
  - Migraine [Unknown]
  - Tachycardia [Recovered/Resolved]
  - Back pain [Unknown]
  - Menorrhagia [Unknown]
